FAERS Safety Report 9364175 (Version 4)
Quarter: 2013Q3

REPORT INFORMATION
  Report Type: Spontaneous
  Country: JP (occurrence: JP)
  Receive Date: 20130624
  Receipt Date: 20130715
  Transmission Date: 20140515
  Serious: Yes (Other)
  Sender: FDA-Public Use
  Company Number: JP-PFIZER INC-2013187748

PATIENT
  Age: 74 Year
  Sex: Female

DRUGS (4)
  1. NORPACE [Suspect]
     Indication: ATRIAL FIBRILLATION
     Dosage: 100 MG, TWICE DAILY
     Route: 048
  2. HALFDIGOXIN [Concomitant]
     Indication: ATRIAL FIBRILLATION
     Dosage: 0.125 MG, DAILY
  3. VASOLAN [Concomitant]
     Indication: ARRHYTHMIA
     Dosage: 40 MG, DAILY
  4. WARFARIN [Concomitant]
     Dosage: 0.3 MG, DAILY

REACTIONS (1)
  - Bradycardia [Not Recovered/Not Resolved]
